FAERS Safety Report 21740853 (Version 1)
Quarter: 2022Q4

REPORT INFORMATION
  Report Type: Spontaneous
  Country: US (occurrence: None)
  Receive Date: 20221215
  Receipt Date: 20221215
  Transmission Date: 20230112
  Serious: Yes (Hospitalization)
  Sender: FDA-Public Use
  Company Number: None

PATIENT
  Age: 54 Year
  Sex: Male

DRUGS (1)
  1. REBIF REBIDOSE [Suspect]
     Active Substance: INTERFERON BETA-1A
     Dosage: 44MCG  THREE TIMES WEEK OTHER SUBCUTANEOUS?
     Route: 058
     Dates: start: 2002, end: 20221213

REACTIONS (3)
  - Peroneal nerve palsy [None]
  - Gait disturbance [None]
  - Feeling cold [None]

NARRATIVE: CASE EVENT DATE: 20220101
